FAERS Safety Report 15890269 (Version 1)
Quarter: 2019Q1

REPORT INFORMATION
  Report Type: Report from Study
  Country: None (occurrence: BR)
  Receive Date: 20190130
  Receipt Date: 20190130
  Transmission Date: 20190417
  Serious: Yes (Other)
  Sender: FDA-Public Use
  Company Number: BR-ABBVIE-18K-020-2221867-00

PATIENT
  Age: 36 Year
  Sex: Male
  Weight: 60 kg

DRUGS (5)
  1. DIPYRONE [Concomitant]
     Active Substance: DIPYRONE
     Indication: PAIN
  2. TRAMADOL. [Concomitant]
     Active Substance: TRAMADOL
     Indication: PAIN
  3. PREDNISOLONE. [Concomitant]
     Active Substance: PREDNISOLONE
     Indication: PRODUCT USED FOR UNKNOWN INDICATION
  4. HUMIRA [Suspect]
     Active Substance: ADALIMUMAB
     Indication: ANKYLOSING SPONDYLITIS
     Route: 058
     Dates: start: 20120801, end: 20180919
  5. CYCLOBENZAPRINE. [Concomitant]
     Active Substance: CYCLOBENZAPRINE
     Indication: PAIN

REACTIONS (9)
  - Pain [Recovering/Resolving]
  - Asthenia [Recovering/Resolving]
  - Musculoskeletal stiffness [Recovering/Resolving]
  - Drug effect incomplete [Unknown]
  - Drug intolerance [Unknown]
  - Mobility decreased [Recovering/Resolving]
  - Drug ineffective [Unknown]
  - Malaise [Unknown]
  - Injection site pain [Recovered/Resolved]

NARRATIVE: CASE EVENT DATE: 201707
